FAERS Safety Report 14542535 (Version 1)
Quarter: 2018Q1

REPORT INFORMATION
  Report Type: Spontaneous
  Country: US (occurrence: US)
  Receive Date: 20180216
  Receipt Date: 20180216
  Transmission Date: 20180509
  Serious: Yes (Other)
  Sender: FDA-Public Use
  Company Number: None

PATIENT
  Age: 53 Year
  Sex: Male
  Weight: 63.5 kg

DRUGS (11)
  1. DIAZEPAM. [Concomitant]
     Active Substance: DIAZEPAM
  2. INCIVEK [Suspect]
     Active Substance: TELAPREVIR
     Indication: LIVER DISORDER
     Dosage: 375 MG 2 PILLS (750 MG) 3 X DAY MOUTH
     Route: 048
     Dates: start: 20130116, end: 20130316
  3. RIBAVIRIN 200MG [Suspect]
     Active Substance: RIBAVIRIN
     Indication: LIVER DISORDER
     Dosage: 1000 DAILY 200 MG 5 3 EVERY MORNING 2 EVERY EVENING MOUTH
     Route: 048
     Dates: start: 20130116, end: 201308
  4. PEGINTRON [Suspect]
     Active Substance: PEGINTERFERON ALFA-2B
     Indication: LIVER DISORDER
     Dosage: 0.5ML (120 MCG) 1 REDIPEN 1X WEEK INJECTION
     Dates: start: 20130103, end: 201308
  5. RIBAVIRIN 200MG [Suspect]
     Active Substance: RIBAVIRIN
     Indication: HEPATITIS C
     Dosage: 1000 DAILY 200 MG 5 3 EVERY MORNING 2 EVERY EVENING MOUTH
     Route: 048
     Dates: start: 20130116, end: 201308
  6. PROPRANOLOL ER [Concomitant]
     Active Substance: PROPRANOLOL HYDROCHLORIDE
  7. IRON [Concomitant]
     Active Substance: IRON
  8. PEGINTRON [Suspect]
     Active Substance: PEGINTERFERON ALFA-2B
     Indication: HEPATITIS C
     Dosage: 0.5ML (120 MCG) 1 REDIPEN 1X WEEK INJECTION
     Dates: start: 20130103, end: 201308
  9. HYDROCHLOROTHIAZIDE. [Concomitant]
     Active Substance: HYDROCHLOROTHIAZIDE
  10. INCIVEK [Suspect]
     Active Substance: TELAPREVIR
     Indication: HEPATITIS C
     Dosage: 375 MG 2 PILLS (750 MG) 3 X DAY MOUTH
     Route: 048
     Dates: start: 20130116, end: 20130316
  11. VIT B1 [Suspect]
     Active Substance: THIAMINE

REACTIONS (5)
  - Penile size reduced [None]
  - Loss of libido [None]
  - Penile curvature [None]
  - Discomfort [None]
  - Penis disorder [None]

NARRATIVE: CASE EVENT DATE: 20130116
